FAERS Safety Report 6170231-1 (Version None)
Quarter: 2009Q2

REPORT INFORMATION
  Report Type: 
  Country: None (occurrence: None)
  Receive Date: 20090428
  Receipt Date: 20090422
  Transmission Date: 20091009
  Serious: Yes (Hospitalization, Other)
  Sender: FDA-Public Use
  Company Number: PHHY2009JP11234

PATIENT
  Age: 65 Year
  Sex: Female

DRUGS (1)
  1. VOLTAREN [Suspect]
     Indication: ARTHRALGIA
     Dosage: 75MG PER DAY
     Route: 048
     Dates: start: 20040101, end: 20080101

REACTIONS (9)
  - ABDOMINAL PAIN [None]
  - COLONIC STENOSIS [None]
  - CONDITION AGGRAVATED [None]
  - CONSTIPATION [None]
  - CYTOMEGALOVIRUS COLITIS [None]
  - DIARRHOEA [None]
  - ENDOSCOPY GASTROINTESTINAL [None]
  - LARGE INTESTINAL ULCER [None]
  - PYREXIA [None]
